FAERS Safety Report 22021482 (Version 1)
Quarter: 2023Q1

REPORT INFORMATION
  Report Type: Report from Study
  Country: AU (occurrence: AU)
  Receive Date: 20230222
  Receipt Date: 20230222
  Transmission Date: 20230418
  Serious: Yes (Death)
  Sender: FDA-Public Use
  Company Number: AU-KARYOPHARM THERAPEUTICS, INC.-2023KPT000800

PATIENT
  Age: 64 Year
  Sex: Female

DRUGS (1)
  1. SELINEXOR [Suspect]
     Active Substance: SELINEXOR
     Indication: Plasma cell myeloma
     Dosage: 40 MG, 2X/WEEK
     Route: 065

REACTIONS (3)
  - Disease progression [Fatal]
  - Decreased appetite [Unknown]
  - Nausea [Unknown]
